FAERS Safety Report 19491230 (Version 2)
Quarter: 2021Q3

REPORT INFORMATION
  Report Type: Spontaneous
  Country: US (occurrence: US)
  Receive Date: 20210705
  Receipt Date: 20210708
  Transmission Date: 20211014
  Serious: No
  Sender: FDA-Public Use
  Company Number: NVSC2021US144976

PATIENT
  Sex: Male

DRUGS (2)
  1. TRIFLURIDINE. [Suspect]
     Active Substance: TRIFLURIDINE
     Indication: OPHTHALMIC HERPES ZOSTER
     Dosage: 1 %, TID (7.5 ML)(1 DROP IN 1 EYE)
     Route: 065
     Dates: start: 20210624
  2. ACYCLOVIR. [Concomitant]
     Active Substance: ACYCLOVIR
     Indication: PRODUCT USED FOR UNKNOWN INDICATION
     Route: 065

REACTIONS (2)
  - Product storage error [Unknown]
  - Product use in unapproved indication [Unknown]
